FAERS Safety Report 13626785 (Version 1)
Quarter: 2017Q2

REPORT INFORMATION
  Report Type: Spontaneous
  Country: US (occurrence: US)
  Receive Date: 20170608
  Receipt Date: 20170608
  Transmission Date: 20170830
  Serious: Yes (Death, Life-Threatening, Disabling, Other)
  Sender: FDA-Public Use
  Company Number: None

PATIENT
  Age: 31 Year
  Sex: Male
  Weight: 75 kg

DRUGS (2)
  1. PROPECIA [Suspect]
     Active Substance: FINASTERIDE
     Indication: ANDROGENETIC ALOPECIA
     Route: 048
     Dates: start: 201404, end: 201507
  2. PROPECIA [Suspect]
     Active Substance: FINASTERIDE
     Indication: ANDROGENETIC ALOPECIA
     Route: 048
     Dates: start: 2009, end: 2011

REACTIONS (20)
  - Headache [None]
  - Erectile dysfunction [None]
  - Palpitations [None]
  - Stress [None]
  - Completed suicide [None]
  - Nausea [None]
  - Insomnia [None]
  - Feeling abnormal [None]
  - Decreased appetite [None]
  - Weight decreased [None]
  - Dry mouth [None]
  - Depression [None]
  - Neck pain [None]
  - Loss of libido [None]
  - Diarrhoea [None]
  - Brain injury [None]
  - Testicular pain [None]
  - Panic attack [None]
  - Vomiting [None]
  - Asphyxia [None]

NARRATIVE: CASE EVENT DATE: 20151104
